FAERS Safety Report 8132676-X (Version None)
Quarter: 2012Q1

REPORT INFORMATION
  Report Type: 
  Country: None (occurrence: None)
  Receive Date: 20120213
  Receipt Date: 20120206
  Transmission Date: 20120608
  Serious: Yes (Hospitalization)
  Sender: FDA-Public Use
  Company Number: FR-VIIV HEALTHCARE LIMITED-B0780973A

PATIENT
  Age: 4 Month
  Sex: Female

DRUGS (5)
  1. ZIDOVUDINE [Suspect]
     Route: 064
     Dates: start: 20090701
  2. LAMIVUDINE (EPIVIR HBV) [Suspect]
     Route: 064
     Dates: start: 20090701
  3. ZIDOVUDINE [Suspect]
     Indication: PROPHYLAXIS
     Dosage: 4MGK PER DAY
     Dates: start: 20101105
  4. SAQUINAVIR [Suspect]
     Route: 064
     Dates: start: 20090701
  5. RITONAVIR [Suspect]
     Route: 064
     Dates: start: 20090701

REACTIONS (5)
  - FOETAL EXPOSURE DURING PREGNANCY [None]
  - EOSINOPHILIA [None]
  - DIARRHOEA [None]
  - PYREXIA [None]
  - LEUKOCYTOSIS [None]
